FAERS Safety Report 13170833 (Version 1)
Quarter: 2017Q1

REPORT INFORMATION
  Report Type: Spontaneous
  Country: US (occurrence: US)
  Receive Date: 20170201
  Receipt Date: 20170201
  Transmission Date: 20170428
  Serious: No
  Sender: FDA-Public Use
  Company Number: US-TEVA-712228USA

PATIENT
  Sex: Female

DRUGS (2)
  1. PREDNISONE. [Suspect]
     Active Substance: PREDNISONE
     Route: 065
  2. CINQAR [Concomitant]
     Route: 042
     Dates: start: 20160926

REACTIONS (3)
  - Skin atrophy [Unknown]
  - Dry skin [Unknown]
  - Contusion [Unknown]
